FAERS Safety Report 10537811 (Version 1)
Quarter: 2014Q4

REPORT INFORMATION
  Report Type: Spontaneous
  Country: US (occurrence: None)
  Receive Date: 20141022
  Receipt Date: 20141022
  Transmission Date: 20150529
  Serious: Yes (Life-Threatening, Hospitalization)
  Sender: FDA-Public Use
  Company Number: None

PATIENT
  Age: 64 Year
  Sex: Male
  Weight: 97.7 kg

DRUGS (2)
  1. ASPIRIN. [Suspect]
     Active Substance: ASPIRIN
     Indication: CEREBROVASCULAR ACCIDENT PROPHYLAXIS
     Dates: start: 20100825, end: 20141015
  2. WARFARIN [Suspect]
     Active Substance: WARFARIN
     Indication: ATRIAL FIBRILLATION
     Dosage: MG PO
     Route: 048
     Dates: start: 20100825, end: 20141015

REACTIONS (6)
  - Hypokalaemia [None]
  - Brain midline shift [None]
  - Haemorrhage intracranial [None]
  - Cerebral haemorrhage [None]
  - Coagulopathy [None]
  - Hyperglycaemia [None]

NARRATIVE: CASE EVENT DATE: 20141015
